FAERS Safety Report 22141880 (Version 1)
Quarter: 2023Q1

REPORT INFORMATION
  Report Type: Spontaneous
  Country: CN (occurrence: CN)
  Receive Date: 20230327
  Receipt Date: 20230327
  Transmission Date: 20230417
  Serious: Yes (Other)
  Sender: FDA-Public Use
  Company Number: CN-PFIZER INC-PV202300053820

PATIENT
  Age: 49 Year
  Sex: Female

DRUGS (2)
  1. PACLITAXEL [Suspect]
     Active Substance: PACLITAXEL
     Indication: Ovarian cancer stage III
     Dosage: 150 MG, 1X/DAY
     Route: 041
     Dates: start: 20230301, end: 20230302
  2. PACLITAXEL [Suspect]
     Active Substance: PACLITAXEL
     Dosage: 30 MG, 1X/DAY
     Route: 041
     Dates: start: 20230301, end: 20230302

REACTIONS (1)
  - Drug-induced liver injury [Recovered/Resolved]

NARRATIVE: CASE EVENT DATE: 20230306
